FAERS Safety Report 6703848-3 (Version None)
Quarter: 2010Q2

REPORT INFORMATION
  Report Type: 
  Country: None (occurrence: None)
  Receive Date: 20100430
  Receipt Date: 20100420
  Transmission Date: 20101027
  Serious: Yes (Other)
  Sender: FDA-Public Use
  Company Number: ES-PFIZER INC-2010050191

PATIENT
  Age: 12 Year
  Sex: Female

DRUGS (1)
  1. GENOTONORM [Suspect]
     Indication: TURNER'S SYNDROME
     Dosage: 1.4 MG, 1X/DAY
     Route: 058
     Dates: start: 20100301

REACTIONS (1)
  - ATTENTION DEFICIT/HYPERACTIVITY DISORDER [None]
